FAERS Safety Report 15653870 (Version 1)
Quarter: 2018Q4

REPORT INFORMATION
  Report Type: Spontaneous
  Country: US (occurrence: US)
  Receive Date: 20181124
  Receipt Date: 20181124
  Transmission Date: 20190205
  Serious: Yes (Other)
  Sender: FDA-Public Use
  Company Number: None

PATIENT
  Age: 50 Year
  Sex: Female
  Weight: 76.5 kg

DRUGS (13)
  1. BOSWELLIA SERRATA RESIN EXTRACT [Concomitant]
     Active Substance: BOSWELLIA SERRATA RESIN EXTRACT
  2. AIMOVIG [Suspect]
     Active Substance: ERENUMAB-AOOE
     Indication: MIGRAINE
     Dosage: ?          QUANTITY:1 INJECTION(S);OTHER FREQUENCY:MONTHLY;?
     Route: 058
     Dates: start: 20180823
  3. IMITREX [Concomitant]
     Active Substance: SUMATRIPTAN SUCCINATE
  4. DICLOFENAC [Concomitant]
     Active Substance: DICLOFENAC
  5. VITAMIN D [Concomitant]
     Active Substance: CHOLECALCIFEROL
  6. CHONDROITIN SULFATE [Concomitant]
     Active Substance: CHONDROITIN SULFATE (BOVINE)
  7. COLLAGEN [Concomitant]
     Active Substance: COLLAGEN
  8. VERAPAMIL ER [Concomitant]
     Active Substance: VERAPAMIL HYDROCHLORIDE
  9. CALCIUM CITRATE [Concomitant]
     Active Substance: CALCIUM CITRATE
  10. GLUCOSAMINE [Concomitant]
     Active Substance: GLUCOSAMINE
  11. PROPRIETARY BLEND OF METHYLSULFONYLMETHANE [Concomitant]
  12. CITRUS BIOFLAVONOID EXTRACT (PURITAN^S PRIDE BRAND) [Concomitant]
  13. AMITRYPTILENE [Concomitant]

REACTIONS (7)
  - Vascular injury [None]
  - Therapeutic response unexpected [None]
  - Accident [None]
  - Osteonecrosis [None]
  - Post-traumatic pain [None]
  - Gait disturbance [None]
  - Traumatic fracture [None]

NARRATIVE: CASE EVENT DATE: 20181118
